FAERS Safety Report 20751889 (Version 1)
Quarter: 2022Q2

REPORT INFORMATION
  Report Type: Spontaneous
  Country: US (occurrence: US)
  Receive Date: 20220426
  Receipt Date: 20220426
  Transmission Date: 20220720
  Serious: No
  Sender: FDA-Public Use
  Company Number: US-PFIZER INC-202101111774

PATIENT
  Sex: Male

DRUGS (1)
  1. LATANOPROST [Suspect]
     Active Substance: LATANOPROST
     Dosage: UNK

REACTIONS (4)
  - Poor quality product administered [Unknown]
  - Product storage error [Unknown]
  - Ocular discomfort [Unknown]
  - Ocular hyperaemia [Unknown]
